FAERS Safety Report 7392141-4 (Version None)
Quarter: 2011Q2

REPORT INFORMATION
  Report Type: 
  Country: None (occurrence: None)
  Receive Date: 20110404
  Receipt Date: 20110328
  Transmission Date: 20111010
  Serious: Yes (Other)
  Sender: FDA-Public Use
  Company Number: A0911324A

PATIENT
  Age: 55 Year
  Sex: Female

DRUGS (1)
  1. PROMACTA [Suspect]
     Dosage: 50MG PER DAY
     Dates: start: 20101120, end: 20101217

REACTIONS (6)
  - VOMITING [None]
  - DECREASED APPETITE [None]
  - HEPATOTOXICITY [None]
  - ABDOMINAL PAIN UPPER [None]
  - THROMBOCYTOSIS [None]
  - NAUSEA [None]
